FAERS Safety Report 19473863 (Version 3)
Quarter: 2021Q3

REPORT INFORMATION
  Report Type: Spontaneous
  Country: NO (occurrence: NO)
  Receive Date: 20210629
  Receipt Date: 20210706
  Transmission Date: 20211014
  Serious: Yes (Other)
  Sender: FDA-Public Use
  Company Number: NO-GLAXOSMITHKLINE-NOCH2021EME041321

PATIENT

DRUGS (1)
  1. VOLTAROL (DICLOFENAC DIETHYLAMMONIUM SALT) [Suspect]
     Active Substance: DICLOFENAC DIETHYLAMINE
     Indication: BACK PAIN
     Dosage: UNK
     Dates: start: 20210622

REACTIONS (6)
  - Toxic epidermal necrolysis [Unknown]
  - Product complaint [Unknown]
  - Rash [Unknown]
  - Suspected counterfeit product [Unknown]
  - Type I hypersensitivity [Unknown]
  - Pruritus [Unknown]
